FAERS Safety Report 5861541-3 (Version None)
Quarter: 2008Q3

REPORT INFORMATION
  Report Type: 
  Country: None (occurrence: None)
  Receive Date: 20080827
  Receipt Date: 20080516
  Transmission Date: 20090109
  Serious: No
  Sender: FDA-Public Use
  Company Number: US-ABBOTT-08P-163-0451405-00

PATIENT
  Sex: Female

DRUGS (3)
  1. NIASPAN [Suspect]
     Indication: DRUG USE FOR UNKNOWN INDICATION
     Route: 048
     Dates: start: 20080401, end: 20080401
  2. NIASPAN [Suspect]
     Route: 048
     Dates: start: 20080501
  3. ALLERGY PILL [Concomitant]
     Indication: FLUSHING
     Route: 048

REACTIONS (2)
  - DIARRHOEA [None]
  - FLUSHING [None]
